FAERS Safety Report 25878877 (Version 1)
Quarter: 2025Q4

REPORT INFORMATION
  Report Type: Spontaneous
  Country: EU (occurrence: EU)
  Receive Date: 20251003
  Receipt Date: 20251003
  Transmission Date: 20260118
  Serious: Yes (Other)
  Sender: AMGEN
  Company Number: EU-AMGEN-AUTSP2025193277

PATIENT
  Age: 60 Year
  Sex: Male

DRUGS (7)
  1. FILGRASTIM [Suspect]
     Active Substance: FILGRASTIM
     Indication: Prophylaxis
     Dosage: UNK
     Route: 065
     Dates: start: 2023
  2. ETOPOSIDE [Suspect]
     Active Substance: ETOPOSIDE
     Indication: Hodgkin^s disease
     Dosage: UNK, BRECADD REGIMEN, RECEIVED FOUR CYCLES
     Route: 065
     Dates: start: 2023
  3. BRENTUXIMAB VEDOTIN [Suspect]
     Active Substance: BRENTUXIMAB VEDOTIN
     Indication: Hodgkin^s disease
     Dosage: UNK, BRECADD REGIMEN, RECEIVED FOUR CYCLES
     Route: 065
     Dates: start: 2023
  4. CYCLOPHOSPHAMIDE [Suspect]
     Active Substance: CYCLOPHOSPHAMIDE
     Indication: Hodgkin^s disease
     Dosage: UNK, BRECADD REGIMEN, RECEIVED FOUR CYCLES
     Route: 065
     Dates: start: 2023
  5. ADRIAMYCIN [Suspect]
     Active Substance: DOXORUBICIN HYDROCHLORIDE
     Indication: Hodgkin^s disease
     Dosage: UNK,  BRECADD REGIMEN, RECEIVED FOUR CYCLES
     Route: 065
     Dates: start: 2023
  6. DACARBAZINE [Suspect]
     Active Substance: DACARBAZINE
     Indication: Hodgkin^s disease
     Dosage: UNK, BRECADD REGIMEN, RECEIVED FOUR CYCLES
     Route: 065
     Dates: start: 2023
  7. DEXAMETHASONE [Suspect]
     Active Substance: DEXAMETHASONE
     Indication: Hodgkin^s disease
     Dosage: UNK, BRECADD REGIMEN, RECEIVED FOUR CYCLES
     Route: 065
     Dates: start: 2023

REACTIONS (5)
  - Neutropenia [Recovered/Resolved]
  - Thrombocytopenia [Recovered/Resolved]
  - Herpes zoster [Unknown]
  - Pelvic pain [Unknown]
  - Anaemia [Recovering/Resolving]
